FAERS Safety Report 4373211-1 (Version None)
Quarter: 2004Q2

REPORT INFORMATION
  Report Type: 
  Country: None (occurrence: None)
  Receive Date: 20040608
  Receipt Date: 20040530
  Transmission Date: 20050107
  Serious: Yes (Other)
  Sender: FDA-Public Use
  Company Number: US-ROCHE-369687

PATIENT
  Age: 16 Year
  Sex: Male

DRUGS (1)
  1. ACCUTANE [Suspect]
     Indication: ACNE
     Route: 048
     Dates: start: 20030115, end: 20030515

REACTIONS (7)
  - CHAPPED LIPS [None]
  - DEPRESSION [None]
  - EPISTAXIS [None]
  - LIP HAEMORRHAGE [None]
  - SUICIDAL IDEATION [None]
  - SUNBURN [None]
  - THINKING ABNORMAL [None]
